FAERS Safety Report 7883811-X (Version None)
Quarter: 2011Q4

REPORT INFORMATION
  Report Type: 
  Country: None (occurrence: None)
  Receive Date: 20111102
  Receipt Date: 20111025
  Transmission Date: 20120403
  Serious: Yes (Other)
  Sender: FDA-Public Use
  Company Number: US-ACTELION-A-US2011-56118

PATIENT

DRUGS (2)
  1. TRACLEER [Suspect]
     Indication: PULMONARY ARTERIAL HYPERTENSION
     Dosage: UNK
     Route: 048
     Dates: start: 20100716
  2. COUMADIN [Concomitant]

REACTIONS (3)
  - MUSCULOSKELETAL PAIN [None]
  - FATIGUE [None]
  - BLOOD POTASSIUM DECREASED [None]
